FAERS Safety Report 6676112-9 (Version None)
Quarter: 2010Q2

REPORT INFORMATION
  Report Type: 
  Country: None (occurrence: None)
  Receive Date: 20100412
  Receipt Date: 20100401
  Transmission Date: 20101027
  Serious: Yes (Hospitalization)
  Sender: FDA-Public Use
  Company Number: CZ-SP-2007-03220

PATIENT
  Sex: Male

DRUGS (1)
  1. IMMUCYST [Suspect]
     Indication: BLADDER CANCER
     Dosage: 1 DOSE A WEEK
     Route: 043
     Dates: start: 20061101

REACTIONS (4)
  - BIOPSY EPIDIDYMIS ABNORMAL [None]
  - EPIDIDYMITIS [None]
  - EPIDIDYMITIS TUBERCULOUS [None]
  - URINARY TRACT INFECTION [None]
